FAERS Safety Report 25936796 (Version 1)
Quarter: 2025Q4

REPORT INFORMATION
  Report Type: Spontaneous
  Country: US (occurrence: None)
  Receive Date: 20251017
  Receipt Date: 20251017
  Transmission Date: 20260118
  Serious: Yes (Hospitalization, Disabling)
  Sender: FDA-CTU
  Company Number: None

PATIENT
  Age: 40 Year
  Sex: Male
  Weight: 108 kg

DRUGS (1)
  1. CIPROFLOXACIN [Suspect]
     Active Substance: CIPROFLOXACIN
     Dates: start: 20250715

REACTIONS (10)
  - Insomnia [None]
  - Anxiety [None]
  - Panic attack [None]
  - Dizziness [None]
  - Tachycardia [None]
  - Erectile dysfunction [None]
  - Tendon pain [None]
  - Neuropathy peripheral [None]
  - Food intolerance [None]
  - Drug intolerance [None]

NARRATIVE: CASE EVENT DATE: 20250801
